FAERS Safety Report 7768823-9 (Version None)
Quarter: 2011Q3

REPORT INFORMATION
  Report Type: 
  Country: None (occurrence: None)
  Receive Date: 20110920
  Receipt Date: 20110905
  Transmission Date: 20111222
  Serious: Yes (Other)
  Sender: FDA-Public Use
  Company Number: AUR-APL-2011-05006

PATIENT
  Age: 61 Year
  Sex: Male
  Weight: 105.2 kg

DRUGS (9)
  1. CITALOPRAM HYDROBROMIDE [Suspect]
     Indication: PRODUCT USED FOR UNKNOWN INDICATION
     Dosage: 10 MG, 1 D, ORAL
     Route: 048
  2. SIMVASTATIN [Suspect]
     Indication: PRODUCT USED FOR UNKNOWN INDICATION
     Dosage: (80 MG, 1 D),
  3. DILTIAZEM HCL [Suspect]
     Indication: ATRIAL FIBRILLATION
     Dosage: (240 MG, 1 D), ORAL
     Route: 048
  4. ATENOLOL [Concomitant]
  5. ACETYLSALICYLIC ACID SRT [Concomitant]
  6. TESTOSTERONE [Concomitant]
  7. ATORVASTATIN CALCIUM [Suspect]
     Indication: ATRIAL FIBRILLATION
     Dosage: (40 MG, 1 D), ORAL
     Route: 048
  8. EZETIMIBE [Concomitant]
  9. PANTOPRAZOLE [Concomitant]

REACTIONS (10)
  - SENSORY DISTURBANCE [None]
  - EXAGGERATED STARTLE RESPONSE [None]
  - SLEEP APNOEA SYNDROME [None]
  - SERUM FERRITIN DECREASED [None]
  - STEREOTYPY [None]
  - HICCUPS [None]
  - MYOCLONUS [None]
  - IRON BINDING CAPACITY TOTAL INCREASED [None]
  - TRANSFERRIN SATURATION DECREASED [None]
  - DRUG INTERACTION [None]
